FAERS Safety Report 8554518-0 (Version None)
Quarter: 2012Q3

REPORT INFORMATION
  Report Type: 
  Country: None (occurrence: None)
  Receive Date: 20120726
  Receipt Date: 20120726
  Transmission Date: 20120928
  Serious: Yes (Other)
  Sender: FDA-Public Use
  Company Number: None

PATIENT
  Age: 17 Year
  Sex: Male
  Weight: 69.4003 kg

DRUGS (3)
  1. MIDODRINE HYDROCHLORIDE [Suspect]
     Indication: SYNCOPE
     Dosage: 10 MG TABLET, TID, PO
     Route: 048
     Dates: start: 20120705, end: 20120705
  2. MIDODRINE HYDROCHLORIDE [Suspect]
     Indication: SYNCOPE
     Dosage: 10 MG TABLET, TID, PO
     Route: 048
     Dates: start: 20120629, end: 20120702
  3. MIDODRINE HYDROCHLORIDE [Suspect]
     Indication: SYNCOPE
     Dosage: 10 MG TABLET, TID, PO
     Route: 048
     Dates: start: 20120705, end: 20120705

REACTIONS (9)
  - PRESSURE OF SPEECH [None]
  - AGITATION [None]
  - PARAESTHESIA [None]
  - PILOERECTION [None]
  - ANGER [None]
  - AGGRESSION [None]
  - RESTLESSNESS [None]
  - ANXIETY [None]
  - PRURITUS [None]
